FAERS Safety Report 5662234-8 (Version None)
Quarter: 2008Q1

REPORT INFORMATION
  Report Type: 
  Country: None (occurrence: None)
  Receive Date: 20080312
  Receipt Date: 20080304
  Transmission Date: 20080703
  Serious: Yes (Hospitalization, Other)
  Sender: FDA-Public Use
  Company Number: US-PFIZER INC-2008021142

PATIENT
  Sex: Female

DRUGS (5)
  1. CHANTIX [Suspect]
     Indication: SMOKING CESSATION THERAPY
     Dates: start: 20070801, end: 20070101
  2. NORVASC [Concomitant]
  3. ALBUTEROL [Concomitant]
  4. DUONEB [Concomitant]
  5. DRUG, UNSPECIFIED [Concomitant]

REACTIONS (3)
  - FEELING ABNORMAL [None]
  - MYOCARDIAL INFARCTION [None]
  - NAUSEA [None]
